FAERS Safety Report 8850804 (Version 1)
Quarter: 2012Q4

REPORT INFORMATION
  Report Type: 
  Country: US (occurrence: US)
  Receive Date: 20121019
  Receipt Date: 20121019
  Transmission Date: 20130627
  Serious: No
  Sender: FDA-Public Use
  Company Number: US-PFIZER INC-2012260640

PATIENT
  Age: 39 Year
  Sex: Female
  Weight: 104 kg

DRUGS (7)
  1. ZOLOFT [Suspect]
     Indication: ANXIETY
     Dosage: 125 mg, daily
     Route: 048
     Dates: start: 2008, end: 2008
  2. ZOLOFT [Suspect]
     Dosage: UNK,by splitting the tablets
     Route: 048
     Dates: start: 2008
  3. ZOLOFT [Suspect]
     Dosage: UNK
  4. LYRICA [Concomitant]
     Dosage: 150 mg, 3x/day
  5. CALCIUM [Concomitant]
     Dosage: 500 mg, daily
     Dates: start: 2012
  6. VITAMIN D [Concomitant]
     Dosage: 500 mg, daily
     Dates: start: 2012
  7. VITAMIN C [Concomitant]
     Dosage: 500 mg, daily
     Dates: start: 2012

REACTIONS (1)
  - Fatigue [Unknown]
